FAERS Safety Report 9168227 (Version 1)
Quarter: 2013Q1

REPORT INFORMATION
  Report Type: Spontaneous
  Country: FR (occurrence: FR)
  Receive Date: 20130318
  Receipt Date: 20130318
  Transmission Date: 20140127
  Serious: Yes (Other)
  Sender: FDA-Public Use
  Company Number: PHHY2013FR025210

PATIENT
  Age: 77 Year
  Sex: Male

DRUGS (9)
  1. STALEVO [Suspect]
     Dosage: 200/100/25 MG, 5 TIMES DAILY
     Route: 048
     Dates: start: 20120320
  2. STALEVO [Suspect]
     Dosage: UNK (DOSE REDUCED)
     Route: 048
  3. SINEMET [Suspect]
     Indication: PARKINSON^S DISEASE
     Dosage: 375/37.5 MG, 5 TIMES DAILY
     Route: 048
     Dates: start: 20120320
  4. SINEMET [Suspect]
     Dosage: UNK (DOSE REDUCED)
     Route: 048
  5. TRANXENE [Suspect]
     Dosage: 10 MG, TID
     Route: 048
     Dates: start: 20120320, end: 20120328
  6. GLUCOR [Concomitant]
     Dosage: 100 MG, BID
     Route: 048
     Dates: end: 20120328
  7. MOTILIUM//DOMPERIDONE [Concomitant]
     Dosage: 20 MG, TID
     Route: 048
  8. PRETERAX                           /01421201/ [Concomitant]
     Dosage: 2 / 0,625 MG, QD
     Route: 048
     Dates: end: 20120328
  9. TADENAN [Concomitant]
     Dosage: 50 MG, BID
     Route: 048

REACTIONS (3)
  - Abnormal behaviour [Recovered/Resolved]
  - Aggression [Recovered/Resolved]
  - Accidental overdose [Recovered/Resolved]
